FAERS Safety Report 24572195 (Version 1)
Quarter: 2024Q4

REPORT INFORMATION
  Report Type: Spontaneous
  Country: US (occurrence: None)
  Receive Date: 20241030
  Receipt Date: 20241030
  Transmission Date: 20250114
  Serious: No
  Sender: Public
  Company Number: None

PATIENT
  Age: 8 Month
  Sex: Female
  Weight: 6.42 kg

DRUGS (1)
  1. NIRSEVIMAB [Suspect]
     Active Substance: NIRSEVIMAB
     Dosage: FREQUENCY : ONCE;?
     Route: 030
     Dates: start: 20241030, end: 20241030

REACTIONS (2)
  - Extra dose administered [None]
  - Vaccination error [None]

NARRATIVE: CASE EVENT DATE: 20241030
